FAERS Safety Report 8362504 (Version 4)
Quarter: 2014Q2

REPORT INFORMATION
  Report Type: Spontaneous
  Country: US (occurrence: US)
  Receive Date: 20120130
  Receipt Date: 20140509
  Transmission Date: 20141212
  Serious: Yes (Other)
  Sender: FDA-Public Use
  Company Number: US-ROCHE-790615

PATIENT
  Age: 15 Year
  Sex: Female
  Weight: 68.1 kg

DRUGS (6)
  1. ACCUTANE [Suspect]
     Indication: ACNE
     Dosage: 40 MG IN MORNING AND 20 MG AT NIGHT.
     Route: 048
     Dates: start: 1996, end: 1997
  2. ACCUTANE [Suspect]
     Route: 065
     Dates: start: 1998, end: 1999
  3. ACCUTANE [Suspect]
     Route: 065
     Dates: start: 2001, end: 2002
  4. EFFEXOR [Concomitant]
  5. XANAX [Concomitant]
  6. RETIN-A [Concomitant]

REACTIONS (13)
  - Crohn^s disease [Unknown]
  - Inflammatory bowel disease [Unknown]
  - Emotional distress [Unknown]
  - Depression [Unknown]
  - Bipolar disorder [Unknown]
  - Suicidal ideation [Unknown]
  - Blood triglycerides increased [Unknown]
  - Dry skin [Unknown]
  - Photosensitivity reaction [Unknown]
  - Blood cholesterol increased [Unknown]
  - Osteopenia [Unknown]
  - Lip dry [Unknown]
  - Aspartate aminotransferase increased [Unknown]
